FAERS Safety Report 21767919 (Version 1)
Quarter: 2022Q4

REPORT INFORMATION
  Report Type: Spontaneous
  Country: US (occurrence: None)
  Receive Date: 20221221
  Receipt Date: 20221221
  Transmission Date: 20230112
  Serious: Yes (Death)
  Sender: FDA-Public Use
  Company Number: None

PATIENT
  Age: 74 Year
  Sex: Female

DRUGS (1)
  1. LEQVIO [Suspect]
     Active Substance: INCLISIRAN SODIUM
     Indication: Arteriosclerosis
     Dosage: OTHER QUANTITY : 284 MG/1.5ML ;?OTHER FREQUENCY : EVERY 3 MONTHS;?
     Route: 058
     Dates: start: 20220921, end: 20221206

REACTIONS (1)
  - Death [None]

NARRATIVE: CASE EVENT DATE: 20221206
